FAERS Safety Report 6166831-5 (Version None)
Quarter: 2009Q2

REPORT INFORMATION
  Report Type: 
  Country: None (occurrence: None)
  Receive Date: 20090422
  Receipt Date: 20090413
  Transmission Date: 20091009
  Serious: Yes (Hospitalization)
  Sender: FDA-Public Use
  Company Number: 2009AL002141

PATIENT
  Age: 10 Year
  Sex: Female

DRUGS (1)
  1. CARBAMAZEPINE [Suspect]
     Indication: EPILEPSY

REACTIONS (26)
  - ABSCESS [None]
  - BETA HAEMOLYTIC STREPTOCOCCAL INFECTION [None]
  - BLOOD ALBUMIN DECREASED [None]
  - BLOOD ALKALINE PHOSPHATASE INCREASED [None]
  - CONJUNCTIVITIS [None]
  - CULTURE URINE POSITIVE [None]
  - CULTURE WOUND POSITIVE [None]
  - CYTOMEGALOVIRUS ANTIBODY POSITIVE [None]
  - DRUG HYPERSENSITIVITY [None]
  - DRUG LEVEL ABOVE THERAPEUTIC [None]
  - DYSPNOEA [None]
  - EOSINOPHILIA [None]
  - HEPATOMEGALY [None]
  - LYMPHADENITIS [None]
  - LYMPHOCYTE MORPHOLOGY ABNORMAL [None]
  - MOUTH ULCERATION [None]
  - NEUTROPHILIA [None]
  - OEDEMA PERIPHERAL [None]
  - PAIN IN EXTREMITY [None]
  - SCRATCH [None]
  - STAPHYLOCOCCAL INFECTION [None]
  - STOMATITIS [None]
  - TACHYCARDIA [None]
  - TENDONITIS [None]
  - TRANSAMINASES INCREASED [None]
  - WEIGHT BEARING DIFFICULTY [None]
